FAERS Safety Report 15967605 (Version 1)
Quarter: 2019Q1

REPORT INFORMATION
  Report Type: Spontaneous
  Country: US (occurrence: US)
  Receive Date: 20190215
  Receipt Date: 20190215
  Transmission Date: 20190418
  Serious: Yes (Other)
  Sender: FDA-Public Use
  Company Number: None

PATIENT
  Sex: Male

DRUGS (4)
  1. METHOTREXATE 2.5 MG [Concomitant]
     Active Substance: METHOTREXATE
  2. MELOXICAM 15 MG [Concomitant]
     Active Substance: MELOXICAM
  3. STELARA [Suspect]
     Active Substance: USTEKINUMAB
     Indication: PSORIASIS
     Dosage: OTHER FREQUENCY:Q12 WEEKS;?
     Route: 058
  4. FOLIC ACID 1 MG [Concomitant]

REACTIONS (1)
  - Gastric ulcer [None]
